FAERS Safety Report 23658932 (Version 1)
Quarter: 2024Q1

REPORT INFORMATION
  Report Type: Spontaneous
  Country: US (occurrence: US)
  Receive Date: 20240321
  Receipt Date: 20240321
  Transmission Date: 20240409
  Serious: No
  Sender: FDA-Public Use
  Company Number: US-TORRENT-00013464

PATIENT
  Sex: Female

DRUGS (1)
  1. ESCITALOPRAM OXALATE [Suspect]
     Active Substance: ESCITALOPRAM OXALATE
     Indication: Product used for unknown indication
     Dosage: AT NIGHT
     Route: 048
     Dates: start: 20240124

REACTIONS (4)
  - Insomnia [Recovered/Resolved]
  - Feeling hot [Recovered/Resolved]
  - Decreased appetite [Recovered/Resolved]
  - Withdrawal syndrome [Recovered/Resolved]
